FAERS Safety Report 22272380 (Version 1)
Quarter: 2023Q2

REPORT INFORMATION
  Report Type: Spontaneous
  Country: ZA (occurrence: ZA)
  Receive Date: 20230502
  Receipt Date: 20230502
  Transmission Date: 20230722
  Serious: Yes (Hospitalization)
  Sender: FDA-Public Use
  Company Number: ZA-LUPIN PHARMACEUTICALS INC.-2023-03286

PATIENT

DRUGS (3)
  1. HYDROCHLOROTHIAZIDE\VALSARTAN [Suspect]
     Active Substance: HYDROCHLOROTHIAZIDE\VALSARTAN
     Indication: Hypertension
     Dosage: UNK MILLIGRAM (160/12.5 MG)
     Route: 048
  2. AMITRIPTYLINE HYDROCHLORIDE [Suspect]
     Active Substance: AMITRIPTYLINE HYDROCHLORIDE
     Indication: Depression
     Dosage: 25 MG
     Route: 048
  3. SERTRALINE HYDROCHLORIDE [Suspect]
     Active Substance: SERTRALINE HYDROCHLORIDE
     Indication: Depression
     Dosage: 100 MG
     Route: 048

REACTIONS (3)
  - Chest pain [Unknown]
  - Arthralgia [Unknown]
  - Oropharyngeal pain [Unknown]
